FAERS Safety Report 9507935 (Version 1)
Quarter: 2013Q1

REPORT INFORMATION
  Report Type: Spontaneous
  Country: US (occurrence: None)
  Receive Date: 20130305
  Receipt Date: 20130305
  Transmission Date: 20140127
  Serious: Yes (Other)
  Sender: FDA-Public Use
  Company Number: 163-21880-11093491

PATIENT
  Age: 74 Year
  Sex: Female
  Weight: 78.93 kg

DRUGS (22)
  1. REVLIMID (LENALIDOMIDE) (25 MILLIGRAM, CAPSULES) [Suspect]
     Indication: PLASMA CELL MYELOMA
     Dosage: 25 MG, DAILY X 3 WEEKS OFF 1 WEEK, PO
     Route: 048
     Dates: start: 20101123, end: 20111011
  2. VELCADE [Suspect]
     Indication: PRODUCT USED FOR UNKNOWN INDICATION
     Route: 042
  3. ALLOPURINOL [Concomitant]
  4. AMLODIPINE BESYLATE (AMLODIPINE BESILATE) [Concomitant]
  5. COUMADIN (WARFARIN SODIUM) [Concomitant]
  6. DEXAMETHASONE [Concomitant]
  7. DYAZIDE [Concomitant]
  8. LOMOTIL [Concomitant]
  9. NYSTATIN [Concomitant]
  10. POTASSIUM CHLORIDE [Concomitant]
  11. COMBIGAN [Concomitant]
  12. FUROSEMIDE [Concomitant]
  13. LEVOXYL (LEVOTHYROXINE SODIUM) [Concomitant]
  14. LISINOPRIL [Concomitant]
  15. METFORMIN HCL (METFORMIN HYDROCHLORIDE) [Concomitant]
  16. MEVACOR (LOVASTATIN) [Concomitant]
  17. DIPHENOXYLATE-ATROPINE (DUOGEBIXTKATE W.ATRIOUBE SYKFATE( [Concomitant]
  18. LOVASTATIN [Concomitant]
  19. AREDIA (PAMIDRONATE DISODIUM) [Concomitant]
  20. COMBIVENT [Concomitant]
  21. GABAPENTIN [Concomitant]
  22. OXYCODONE [Concomitant]

REACTIONS (3)
  - Bone marrow failure [None]
  - White blood cell count decreased [None]
  - Oedema peripheral [None]
